FAERS Safety Report 24785142 (Version 1)
Quarter: 2024Q4

REPORT INFORMATION
  Report Type: Spontaneous
  Country: US (occurrence: None)
  Receive Date: 20241227
  Receipt Date: 20241227
  Transmission Date: 20250114
  Serious: No
  Sender: Public
  Company Number: None

PATIENT
  Sex: Female

DRUGS (1)
  1. CAPECITABINE [Suspect]
     Active Substance: CAPECITABINE
     Indication: Malignant peritoneal neoplasm
     Dosage: OTHER FREQUENCY : 2 TIMES A DAY ON DAYS 1-14 OF 21 DAY CYCLE;?
     Route: 048

REACTIONS (5)
  - Dry skin [None]
  - Skin fissures [None]
  - Abdominal pain [None]
  - Fatigue [None]
  - Neuropathy peripheral [None]
